FAERS Safety Report 10236257 (Version 1)
Quarter: 2014Q1

REPORT INFORMATION
  Report Type: Spontaneous
  Country: US (occurrence: None)
  Receive Date: 20140306
  Receipt Date: 20140306
  Transmission Date: 20141002
  Serious: Yes (Other)
  Sender: FDA-Public Use
  Company Number: 163-21880-13044010

PATIENT
  Age: 53 Year
  Sex: Male

DRUGS (19)
  1. REVLIMID (LENALIDOMIDE) (15 MILLIGRAM, CAPSULES) [Suspect]
     Indication: PLASMA CELL MYELOMA
     Dosage: 28 IN 28 D
     Route: 048
     Dates: start: 20110319
  2. AUGMENTIN [Concomitant]
  3. GABAPENTIN [Concomitant]
  4. AZITHROMYCIN [Concomitant]
  5. DOXYCYCLINE [Concomitant]
  6. CLOBETASOL [Concomitant]
  7. NEXIUM (ESOMEPRAZOLE) [Concomitant]
  8. CRESTOR (ROSUVASTATIN) [Concomitant]
  9. AMITRIPTYLINE [Concomitant]
  10. MIRALAX (MACROGOL) [Concomitant]
  11. FISH OIL [Concomitant]
  12. FINACEA (AZELAIC ACID) [Concomitant]
  13. ZIANA (TRECLIN) [Concomitant]
  14. SODIUM SULFACETAMIDE (SULFACETAMIDE SODIUM) [Concomitant]
  15. ADVIL (IBUPROFEN) [Concomitant]
  16. OMEGA-3 (OMEGA-3 TRIGLYCERIDES) [Concomitant]
  17. ALEVE (NAPROXEN SODIUM) [Concomitant]
  18. LEVOFLOXACIN [Concomitant]
  19. TRAMADOL [Concomitant]

REACTIONS (3)
  - Tachycardia [None]
  - Dry mouth [None]
  - Constipation [None]
